FAERS Safety Report 24896326 (Version 1)
Quarter: 2025Q1

REPORT INFORMATION
  Report Type: Spontaneous
  Country: SG (occurrence: SG)
  Receive Date: 20250128
  Receipt Date: 20250128
  Transmission Date: 20250408
  Serious: Yes (Other)
  Sender: Visiox
  Company Number: SG-Santen Ltd-2025-SGP-000263

PATIENT
  Age: 40 Year
  Sex: Female

DRUGS (1)
  1. OMIDENEPAG ISOPROPYL [Suspect]
     Active Substance: OMIDENEPAG ISOPROPYL
     Indication: Glaucoma
     Route: 047

REACTIONS (2)
  - Eye laser surgery [Unknown]
  - Cystoid macular oedema [Unknown]
